FAERS Safety Report 17140655 (Version 1)
Quarter: 2019Q4

REPORT INFORMATION
  Report Type: Spontaneous
  Country: US (occurrence: US)
  Receive Date: 20191211
  Receipt Date: 20191211
  Transmission Date: 20200122
  Serious: No
  Sender: FDA-Public Use
  Company Number: US-SLATE RUN PHARMACEUTICALS-SLTR-AE-19-84

PATIENT
  Age: 7 Month
  Sex: Male

DRUGS (5)
  1. CEFTRIAXONE. [Concomitant]
     Active Substance: CEFTRIAXONE
  2. VANCOMYCIN HCL FOR INJECTION USP [Suspect]
     Active Substance: VANCOMYCIN HYDROCHLORIDE
     Indication: STAPHYLOCOCCAL INFECTION
  3. GENTAMICIN. [Concomitant]
     Active Substance: GENTAMICIN
  4. AMPICILLAN [Concomitant]
  5. PIPERACILLIN-TAZABACTAM [Concomitant]

REACTIONS (1)
  - Pyrexia [None]
